FAERS Safety Report 14164549 (Version 3)
Quarter: 2018Q2

REPORT INFORMATION
  Report Type: Report from Study
  Country: DE (occurrence: DE)
  Receive Date: 20171107
  Receipt Date: 20180511
  Transmission Date: 20180711
  Serious: Yes (Other)
  Sender: FDA-Public Use
  Company Number: DE-SHIRE-DE201706457

PATIENT

DRUGS (16)
  1. REVESTIVE [Suspect]
     Active Substance: TEDUGLUTIDE
     Dosage: UNK
     Route: 058
  2. JONOSTERIL                         /00351401/ [Concomitant]
     Indication: PRODUCT USED FOR UNKNOWN INDICATION
     Dosage: 1000 ML, OTHER (5 X WEEK)
     Route: 042
     Dates: start: 200808
  3. ZINKAMIN-FALK [Concomitant]
     Indication: PRODUCT USED FOR UNKNOWN INDICATION
     Dosage: UNK, UNKNOWN
     Route: 065
  4. REVESTIVE [Suspect]
     Active Substance: TEDUGLUTIDE
     Indication: SHORT-BOWEL SYNDROME
     Dosage: 0.38 ML, OTHER(DAILY)
     Route: 058
     Dates: start: 20170228
  5. ACETYLSALICYLIC ACID [Concomitant]
     Active Substance: ASPIRIN
     Indication: PRODUCT USED FOR UNKNOWN INDICATION
     Dosage: 100 UNK, OTHER (1 X 1)
     Route: 065
  6. CALCIUM CARBONATE. [Concomitant]
     Active Substance: CALCIUM CARBONATE
     Indication: PRODUCT USED FOR UNKNOWN INDICATION
     Dosage: 1000 MG, UNKNOWN
     Route: 065
  7. VITAMIN B12 [Concomitant]
     Active Substance: CYANOCOBALAMIN
     Indication: PRODUCT USED FOR UNKNOWN INDICATION
     Dosage: UNK, UNKNOWN
     Route: 065
  8. PANTOPRAZOLE [Concomitant]
     Active Substance: PANTOPRAZOLE
     Indication: PRODUCT USED FOR UNKNOWN INDICATION
     Dosage: 40 (UNK) OTHER (1 X 1)
     Route: 065
  9. REVESTIVE [Suspect]
     Active Substance: TEDUGLUTIDE
     Dosage: 0.38 UNK, UNK, DAILY
     Dates: start: 20170228
  10. VASOSAN [Concomitant]
     Indication: PRODUCT USED FOR UNKNOWN INDICATION
     Dosage: UNK, OTHER (3 X1)
     Route: 065
  11. FOLIC ACID. [Concomitant]
     Active Substance: FOLIC ACID
     Indication: PRODUCT USED FOR UNKNOWN INDICATION
     Dosage: UNK, UNKNOWN
     Route: 048
  12. LERCANIDIPINE [Concomitant]
     Active Substance: LERCANIDIPINE
     Indication: BLOOD PRESSURE MEASUREMENT
     Dosage: 10 MG, 1X/DAY:QD
     Route: 065
  13. SELENASE                           /00075003/ [Concomitant]
     Indication: PRODUCT USED FOR UNKNOWN INDICATION
     Dosage: UNK, UNKNOWN
     Route: 065
  14. LOPEDIUM [Concomitant]
     Active Substance: LOPERAMIDE
     Indication: PRODUCT USED FOR UNKNOWN INDICATION
     Dosage: 4-4-3-4 (UNK), OTHER
     Route: 065
  15. CALCIMAGON                         /00751501/ [Concomitant]
     Active Substance: CALCIUM CARBONATE
     Indication: PRODUCT USED FOR UNKNOWN INDICATION
     Dosage: UNK, UNKNOWN
     Route: 065
  16. BICANORM [Concomitant]
     Active Substance: SODIUM BICARBONATE
     Indication: PRODUCT USED FOR UNKNOWN INDICATION
     Dosage: UNK, OTHER (3 X 1)
     Route: 065

REACTIONS (8)
  - Hypertension [Recovered/Resolved]
  - Tinnitus [Unknown]
  - Furuncle [Recovered/Resolved]
  - Cough [Recovered/Resolved]
  - Nephrolithiasis [Unknown]
  - Malaise [Unknown]
  - Inflammation [Unknown]
  - Flatulence [Recovering/Resolving]

NARRATIVE: CASE EVENT DATE: 20170312
